FAERS Safety Report 6468279-2 (Version None)
Quarter: 2009Q4

REPORT INFORMATION
  Report Type: 
  Country: None (occurrence: None)
  Receive Date: 20091130
  Receipt Date: 20091110
  Transmission Date: 20100525
  Serious: Yes (Hospitalization)
  Sender: FDA-Public Use
  Company Number: 2009003457

PATIENT
  Age: 65 Year
  Sex: Female

DRUGS (6)
  1. ERLOTINIB HYDROCHLORIDE [Suspect]
     Indication: LUNG NEOPLASM MALIGNANT
     Dosage: (QD),ORAL
     Route: 048
     Dates: start: 20091008, end: 20091029
  2. GEMCITABINE [Suspect]
     Indication: LUNG NEOPLASM MALIGNANT
     Dosage: (1.6 GM),INTRAVENOUS  LUNG NEOPLASM MAL
  3. CARBOPLATIN                   (INJECTION FOR INFUSION) [Suspect]
     Indication: LUNG NEOPLASM MALIGNANT
     Dosage: (450 MG), INTRAVENOUS
     Route: 042
  4. TRAMADOL HCL [Concomitant]
  5. MULTI-VITAMINS [Concomitant]
  6. FERROUS SULFATE TAB [Concomitant]

REACTIONS (4)
  - ANAEMIA [None]
  - ASTHENIA [None]
  - DECREASED APPETITE [None]
  - DYSPNOEA [None]
